FAERS Safety Report 7820321-X (Version None)
Quarter: 2011Q4

REPORT INFORMATION
  Report Type: 
  Country: None (occurrence: None)
  Receive Date: 20111018
  Receipt Date: 20111013
  Transmission Date: 20120403
  Serious: Yes (Hospitalization)
  Sender: FDA-Public Use
  Company Number: FR-ROCHE-1004620

PATIENT
  Sex: Male
  Weight: 86 kg

DRUGS (8)
  1. MYCOPHENOLATE MOFETIL (CELLCEPT) [Suspect]
     Indication: PROPHYLAXIS AGAINST TRANSPLANT REJECTION
     Route: 048
     Dates: start: 20110722
  2. PREDNISOLONE SODIUM METASULFOBENZOATE [Suspect]
     Indication: PROPHYLAXIS AGAINST TRANSPLANT REJECTION
  3. OFLOXACIN [Concomitant]
     Dates: start: 20111011
  4. ROCEPHIN [Concomitant]
     Dates: start: 20111011
  5. MYCOPHENOLATE MOFETIL (CELLCEPT) [Suspect]
     Dosage: DOSE REDUCED
     Route: 048
     Dates: start: 20110908
  6. MYCOPHENOLATE MOFETIL (CELLCEPT) [Suspect]
     Route: 048
     Dates: start: 20111011
  7. EVEROLIMUS [Suspect]
     Indication: PROPHYLAXIS AGAINST TRANSPLANT REJECTION
     Route: 048
     Dates: start: 20110902
  8. OFLOXACIN [Concomitant]
     Dates: start: 20111012

REACTIONS (1)
  - FEBRILE NEUTROPENIA [None]
